FAERS Safety Report 24898967 (Version 1)
Quarter: 2025Q1

REPORT INFORMATION
  Report Type: Spontaneous
  Country: US (occurrence: None)
  Receive Date: 20250128
  Receipt Date: 20250128
  Transmission Date: 20250408
  Serious: Yes (Death)
  Sender: FDA-CTU
  Company Number: None

PATIENT
  Age: 74 Year
  Sex: Female

DRUGS (26)
  1. PRALUENT [Suspect]
     Active Substance: ALIROCUMAB
     Indication: Product used for unknown indication
     Route: 058
     Dates: start: 20240603
  2. AMIODARONE [Concomitant]
     Active Substance: AMIODARONE
  3. ELIQUIS [Concomitant]
     Active Substance: APIXABAN
  4. HYDRALAZINE [Concomitant]
     Active Substance: HYDRALAZINE HYDROCHLORIDE
  5. IRON [Concomitant]
     Active Substance: IRON
  6. METOPROLOL SUCCINATE [Concomitant]
     Active Substance: METOPROLOL SUCCINATE
  7. POTASSIUM [Concomitant]
     Active Substance: POTASSIUM
  8. ALLOPURINOL [Concomitant]
     Active Substance: ALLOPURINOL
  9. AMLODIPINE BESYLATE [Concomitant]
     Active Substance: AMLODIPINE BESYLATE
  10. ASPIRIN [Concomitant]
     Active Substance: ASPIRIN
  11. BIOTIN [Concomitant]
     Active Substance: BIOTIN
  12. CALCIUM+ D [Concomitant]
  13. COLACE [Concomitant]
     Active Substance: DOCUSATE SODIUM
  14. GEMFIBROZIL [Concomitant]
     Active Substance: GEMFIBROZIL
  15. GLUCOSAMINE [Concomitant]
     Active Substance: GLUCOSAMINE
  16. HUMALOG [Concomitant]
     Active Substance: INSULIN LISPRO
  17. HYGROTON [Concomitant]
     Active Substance: CHLORTHALIDONE
  18. IBUPROFEN [Concomitant]
     Active Substance: IBUPROFEN
  19. LASIX [Suspect]
     Active Substance: FUROSEMIDE
  20. LEVEMIR [Concomitant]
     Active Substance: INSULIN DETEMIR
  21. MULTIVITAMIN ADULT 50+ [Concomitant]
  22. OMEGA-3 ACIDS [Concomitant]
     Active Substance: OMEGA-3 FATTY ACIDS
  23. VITAMIN D [Concomitant]
     Active Substance: VITAMIN D NOS
  24. ZETIA [Concomitant]
     Active Substance: EZETIMIBE
  25. ZINC [Concomitant]
     Active Substance: ZINC
  26. DOXAZOSIN [Concomitant]
     Active Substance: DOXAZOSIN MESYLATE

REACTIONS (1)
  - Death [None]

NARRATIVE: CASE EVENT DATE: 20250126
